FAERS Safety Report 6864421-X (Version None)
Quarter: 2010Q3

REPORT INFORMATION
  Report Type: 
  Country: None (occurrence: None)
  Receive Date: 20100721
  Receipt Date: 20080325
  Transmission Date: 20110219
  Serious: No
  Sender: FDA-Public Use
  Company Number: US-PFIZER INC-2008028067

PATIENT
  Sex: Male
  Weight: 92.7 kg

DRUGS (1)
  1. CHANTIX [Suspect]
     Indication: SMOKING CESSATION THERAPY
     Route: 048
     Dates: start: 20070101

REACTIONS (10)
  - ANGER [None]
  - DEPRESSION [None]
  - DIARRHOEA [None]
  - FEELING OF DESPAIR [None]
  - FRUSTRATION [None]
  - HYPERHIDROSIS [None]
  - INSOMNIA [None]
  - MALAISE [None]
  - MOOD ALTERED [None]
  - NIGHTMARE [None]
